FAERS Safety Report 7587688-1 (Version None)
Quarter: 2011Q3

REPORT INFORMATION
  Report Type: 
  Country: None (occurrence: None)
  Receive Date: 20110704
  Receipt Date: 20110630
  Transmission Date: 20111222
  Serious: Yes (Death)
  Sender: FDA-Public Use
  Company Number: PHHY2011JP58677

PATIENT
  Age: 66 Year
  Sex: Female

DRUGS (2)
  1. TASIGNA [Suspect]
     Indication: CHRONIC MYELOID LEUKAEMIA TRANSFORMATION
     Dosage: 800 MG, DAILY
     Route: 048
     Dates: start: 20100610, end: 20100613
  2. VORICONAZOLE [Concomitant]
     Dosage: UNK
     Dates: start: 20110613

REACTIONS (1)
  - ASPERGILLOSIS [None]
